FAERS Safety Report 5132911-6 (Version None)
Quarter: 2006Q4

REPORT INFORMATION
  Report Type: 
  Country: None (occurrence: None)
  Receive Date: 20061019
  Receipt Date: 20061019
  Transmission Date: 20070319
  Serious: Yes (Hospitalization)
  Sender: FDA-Public Use
  Company Number: None

PATIENT
  Sex: Female
  Weight: 64.6 kg

DRUGS (1)
  1. BEVACIZUMAB 25 MG/ML GENENTECH [Suspect]
     Indication: BREAST CANCER
     Dosage: 15 MG/KG EVERY 3 WEEKS 042
     Dates: start: 20051214, end: 20060707

REACTIONS (4)
  - ABDOMINAL PAIN LOWER [None]
  - LOWER GASTROINTESTINAL HAEMORRHAGE [None]
  - NAUSEA [None]
  - VOMITING [None]
